FAERS Safety Report 7765913-1 (Version None)
Quarter: 2011Q3

REPORT INFORMATION
  Report Type: 
  Country: None (occurrence: None)
  Receive Date: 20110921
  Receipt Date: 20110422
  Transmission Date: 20111222
  Serious: No
  Sender: FDA-Public Use
  Company Number: US-UCBSA-028402

PATIENT
  Sex: Female
  Weight: 97 kg

DRUGS (6)
  1. CLARITIN-D 24 HOUR [Concomitant]
     Indication: SEASONAL ALLERGY
     Dosage: 5-120 MG DAILY/ AS NEEDED
     Dates: start: 20100301
  2. NAPROXEN [Concomitant]
     Indication: CROHN'S DISEASE
  3. VITAMIN B-12 [Concomitant]
     Indication: VITAMIN SUPPLEMENTATION
     Route: 030
     Dates: start: 20070101
  4. ESTRADIOL [Concomitant]
  5. CERTOLIZUMAB PEGOL [Suspect]
     Route: 058
     Dates: start: 20100503
  6. CERTOLIZUMAB PEGOL [Suspect]
     Indication: CROHN'S DISEASE
     Route: 058
     Dates: start: 20100308, end: 20100405

REACTIONS (1)
  - ORAL CANDIDIASIS [None]
